FAERS Safety Report 22052402 (Version 1)
Quarter: 2023Q1

REPORT INFORMATION
  Report Type: Spontaneous
  Country: PR (occurrence: None)
  Receive Date: 20230302
  Receipt Date: 20230302
  Transmission Date: 20230418
  Serious: Yes (Other)
  Sender: FDA-Public Use
  Company Number: PR-ROCHE-3294166

PATIENT
  Sex: Female

DRUGS (1)
  1. OCREVUS [Suspect]
     Active Substance: OCRELIZUMAB
     Indication: Relapsing multiple sclerosis
     Route: 042
     Dates: start: 202106

REACTIONS (7)
  - Fatigue [Unknown]
  - Gingivitis [Unknown]
  - Pyrexia [Unknown]
  - Respiratory tract irritation [Unknown]
  - Oral herpes [Unknown]
  - Discomfort [Unknown]
  - Necrosis [Unknown]

NARRATIVE: CASE EVENT DATE: 20230217
